FAERS Safety Report 21233577 (Version 1)
Quarter: 2022Q3

REPORT INFORMATION
  Report Type: Spontaneous
  Country: JP (occurrence: JP)
  Receive Date: 20220819
  Receipt Date: 20220819
  Transmission Date: 20221027
  Serious: Yes (Other)
  Sender: FDA-Public Use
  Company Number: JP-OTSUKA-2022_041099

PATIENT
  Sex: Female

DRUGS (1)
  1. ABILIFY MAINTENA [Suspect]
     Active Substance: ARIPIPRAZOLE
     Indication: Schizophrenia
     Dosage: UNK
     Route: 065

REACTIONS (8)
  - Renal impairment [Unknown]
  - Abnormal weight gain [Unknown]
  - Oedema [Unknown]
  - Red blood cell count increased [Unknown]
  - Endometriosis [Unknown]
  - Micturition frequency decreased [Unknown]
  - Blood creatinine increased [Unknown]
  - Hyperglycaemia [Unknown]
